FAERS Safety Report 19964626 (Version 1)
Quarter: 2021Q4

REPORT INFORMATION
  Report Type: Spontaneous
  Country: DE (occurrence: DE)
  Receive Date: 20211018
  Receipt Date: 20211018
  Transmission Date: 20220303
  Serious: Yes (Life-Threatening, Hospitalization, Disabling, Other)
  Sender: FDA-Public Use
  Company Number: DE-PEI-202100206737

PATIENT
  Age: 69 Year
  Sex: Female
  Weight: 55 kg

DRUGS (6)
  1. NIVOLUMAB [Suspect]
     Active Substance: NIVOLUMAB
     Indication: Metastatic malignant melanoma
     Dosage: 55 MILLIGRAM
     Route: 042
     Dates: start: 20210408
  2. NIVOLUMAB [Suspect]
     Active Substance: NIVOLUMAB
     Dosage: 55 MILLIGRAM
     Route: 042
     Dates: start: 20210517
  3. NIVOLUMAB [Suspect]
     Active Substance: NIVOLUMAB
     Dosage: 55 MILLIGRAM
     Route: 042
     Dates: start: 20210609
  4. IPILIMUMAB [Suspect]
     Active Substance: IPILIMUMAB
     Indication: Metastatic malignant melanoma
     Dosage: 165 MILLIGRAM
     Route: 042
     Dates: start: 20210426
  5. IPILIMUMAB [Suspect]
     Active Substance: IPILIMUMAB
     Dosage: 165 MILLIGRAM
     Route: 042
     Dates: start: 20210517
  6. IPILIMUMAB [Suspect]
     Active Substance: IPILIMUMAB
     Dosage: 165 MILLIGRAM
     Route: 042
     Dates: start: 20210609

REACTIONS (2)
  - Adrenal insufficiency [Not Recovered/Not Resolved]
  - Hypophysitis [Not Recovered/Not Resolved]

NARRATIVE: CASE EVENT DATE: 20210701
